FAERS Safety Report 9695803 (Version 1)
Quarter: 2013Q4

REPORT INFORMATION
  Report Type: Spontaneous
  Country: US (occurrence: None)
  Receive Date: 20131118
  Receipt Date: 20131118
  Transmission Date: 20140711
  Serious: No
  Sender: FDA-Public Use
  Company Number: None

PATIENT
  Age: 64 Year
  Sex: Male
  Weight: 88.45 kg

DRUGS (1)
  1. LORTAB [Suspect]
     Indication: INTERVERTEBRAL DISC DISORDER
     Dosage: 1 TO 2 TABLETS, AS NEEDED, TAKEN BY MOUTH
     Route: 048
     Dates: start: 20131113, end: 20131115

REACTIONS (4)
  - Product quality issue [None]
  - Urticaria [None]
  - Pruritus [None]
  - Eye pruritus [None]
